FAERS Safety Report 25975549 (Version 1)
Quarter: 2025Q4

REPORT INFORMATION
  Report Type: Spontaneous
  Country: EU (occurrence: EU)
  Receive Date: 20251029
  Receipt Date: 20251029
  Transmission Date: 20260117
  Serious: Yes (Other)
  Sender: NOVARTIS
  Company Number: EU-002147023-NVSC2025FR148151

PATIENT
  Age: 88 Year
  Sex: Male

DRUGS (3)
  1. BEOVU [Suspect]
     Active Substance: BROLUCIZUMAB-DBLL
     Indication: Age-related macular degeneration
     Dosage: UNK
     Route: 042
     Dates: start: 20250312
  2. BEOVU [Suspect]
     Active Substance: BROLUCIZUMAB-DBLL
     Dosage: UNK
     Route: 042
     Dates: start: 20250526
  3. BEOVU [Suspect]
     Active Substance: BROLUCIZUMAB-DBLL
     Dosage: UNK (6 MG/0.05 ML)
     Route: 042
     Dates: start: 20250908

REACTIONS (3)
  - Uveitis [Unknown]
  - Vitritis [Recovered/Resolved]
  - Hypopyon [Recovered/Resolved]
